FAERS Safety Report 9586640 (Version 3)
Quarter: 2013Q4

REPORT INFORMATION
  Report Type: Spontaneous
  Country: US (occurrence: US)
  Receive Date: 20131003
  Receipt Date: 20131201
  Transmission Date: 20140711
  Serious: No
  Sender: FDA-Public Use
  Company Number: US-009507513-1310USA001195

PATIENT
  Age: 35 Year
  Sex: Male
  Weight: 81.63 kg

DRUGS (3)
  1. CLARITIN [Suspect]
     Indication: DERMATITIS ALLERGIC
     Dosage: 10 MG, QD
     Route: 048
     Dates: start: 20130919, end: 20130922
  2. CHLORHEXIDINE GLUCONATE [Concomitant]
     Indication: GINGIVAL DISORDER
     Dosage: UNK, UNKNOWN
  3. PRILOSEC [Concomitant]
     Indication: GASTRIC DISORDER

REACTIONS (3)
  - Drug ineffective [Unknown]
  - Drug ineffective for unapproved indication [Unknown]
  - Off label use [Unknown]
